FAERS Safety Report 11862707 (Version 1)
Quarter: 2015Q4

REPORT INFORMATION
  Report Type: Spontaneous
  Country: US (occurrence: None)
  Receive Date: 20151222
  Receipt Date: 20151222
  Transmission Date: 20160305
  Serious: Yes (Other)
  Sender: FDA-Public Use
  Company Number: None

PATIENT
  Age: 75 Year
  Sex: Male
  Weight: 104.33 kg

DRUGS (19)
  1. METOPROLOL TARTRATE. [Concomitant]
     Active Substance: METOPROLOL TARTRATE
  2. DEGARELIX (FIRMAGON 80 MG SUBCUTANEOUS INJECTION) [Concomitant]
  3. DORZOLAMIDE-TIMOLOL OPHTHALMIC [Concomitant]
  4. LISINOPRIL. [Concomitant]
     Active Substance: LISINOPRIL
  5. CALCIUM [Concomitant]
     Active Substance: CALCIUM
     Dosage: CHECK BLOOD SUGAR TID
  6. ASPIRIN. [Concomitant]
     Active Substance: ASPIRIN
  7. CHOLECALCIFEROL (VITAMIN D3) [Concomitant]
  8. FREE STYLE LITE TEST STRIPS [Concomitant]
  9. INSULIN ASPART (NOVOLOG FLEXPEN 100 UNITS/ML SUBCUTANEOUS SOLUTION) [Concomitant]
  10. ZINC GLUCONATE [Concomitant]
     Active Substance: ZINC GLUCONATE
  11. FLEX PEN NEEDLES [Concomitant]
  12. INSULIN GLARGINE (LANTUS 100 UNITS/ML SUBCUTANEOUS SOLUTION) [Concomitant]
  13. LATANOPROST OPTHALMIC (LATANOPROST 0.005% OPHTHALMIC SOLUTION) [Concomitant]
  14. XGEVA [Concomitant]
     Active Substance: DENOSUMAB
  15. SIMVASTATIN. [Concomitant]
     Active Substance: SIMVASTATIN
  16. FIRMAGON [Suspect]
     Active Substance: DEGARELIX ACETATE
  17. METFORMIN [Concomitant]
     Active Substance: METFORMIN HYDROCHLORIDE
  18. MULTIVITAMIN (MULTIPLE VITAMINS ORAL TABLET) [Concomitant]
  19. MAGNESIUM GLUCONATE [Concomitant]
     Active Substance: MAGNESIUM GLUCONATE

REACTIONS (1)
  - Anaemia [None]
